FAERS Safety Report 12562943 (Version 1)
Quarter: 2016Q3

REPORT INFORMATION
  Report Type: Spontaneous
  Country: DE (occurrence: DE)
  Receive Date: 20160715
  Receipt Date: 20160715
  Transmission Date: 20161109
  Serious: Yes (Hospitalization)
  Sender: FDA-Public Use
  Company Number: DE-TEVA-674314GER

PATIENT
  Age: 87 Year
  Sex: Female

DRUGS (3)
  1. DIAZEPAM ABZ 10 MG/ML [Suspect]
     Active Substance: DIAZEPAM
     Indication: BLOOD PRESSURE INCREASED
     Dosage: 5 GTT DAILY;
     Route: 048
  2. DIAZEPAM ABZ 10 MG/ML [Suspect]
     Active Substance: DIAZEPAM
     Indication: SLEEP DISORDER
     Dosage: 4 GTT DAILY;
     Route: 048
     Dates: start: 20160526
  3. PASSIONSBLUME-PRAEPARAT [Concomitant]
     Indication: SLEEP DISORDER

REACTIONS (6)
  - Concussion [Unknown]
  - Facial bones fracture [Unknown]
  - Fall [Recovered/Resolved]
  - Loss of consciousness [Recovered/Resolved]
  - Contusion [Unknown]
  - Presyncope [Unknown]

NARRATIVE: CASE EVENT DATE: 20160526
